FAERS Safety Report 8161509-0 (Version None)
Quarter: 2012Q1

REPORT INFORMATION
  Report Type: 
  Country: None (occurrence: None)
  Receive Date: 20120103
  Receipt Date: 20111001
  Transmission Date: 20120608
  Serious: No
  Sender: FDA-Public Use
  Company Number: AE-2011-001974

PATIENT
  Age: 54 Year
  Sex: Male

DRUGS (5)
  1. ROBAXIN [Concomitant]
  2. PEGASYS [Concomitant]
  3. PERCODAN (PERCODAN) [Concomitant]
  4. INCIVEK [Suspect]
     Dosage: 2250 MG (750 MG, 3 IN 1 D), ORAL
     Route: 048
     Dates: start: 20110807, end: 20110916
  5. RIBAVIRIN [Concomitant]

REACTIONS (1)
  - INSOMNIA [None]
